FAERS Safety Report 7372982-X (Version None)
Quarter: 2011Q1

REPORT INFORMATION
  Report Type: 
  Country: None (occurrence: None)
  Receive Date: 20110324
  Receipt Date: 20110317
  Transmission Date: 20110831
  Serious: Yes (Other)
  Sender: FDA-Public Use
  Company Number: FR-PFIZER INC-2011054030

PATIENT
  Age: 61 Year
  Sex: Male
  Weight: 86 kg

DRUGS (6)
  1. LEVOTHYROXINE [Concomitant]
     Indication: PRIMARY HYPOTHYROIDISM
  2. SOMATROPIN [Suspect]
     Indication: HYPOPITUITARISM
     Dosage: 0.2 MG, 1X/DAY
     Route: 058
     Dates: start: 20050104, end: 20100830
  3. ANDROTARDYL [Concomitant]
     Indication: BLOOD LUTEINISING HORMONE DECREASED
     Dosage: 500 MG, MONTHLY
     Route: 048
     Dates: start: 19990603
  4. ANDROTARDYL [Concomitant]
     Indication: BLOOD FOLLICLE STIMULATING HORMONE DECREASED
  5. HYDROCORTISONE [Concomitant]
     Indication: BLOOD CORTICOTROPHIN DECREASED
     Dosage: 20 MG, 1X/DAY
     Route: 048
     Dates: start: 19971226
  6. LEVOTHYROXINE [Concomitant]
     Indication: BLOOD THYROID STIMULATING HORMONE DECREASED
     Dosage: 150 UG, 1X/DAY
     Route: 048
     Dates: start: 20050319

REACTIONS (1)
  - PITUITARY TUMOUR BENIGN [None]
